FAERS Safety Report 6932374-1 (Version None)
Quarter: 2010Q3

REPORT INFORMATION
  Report Type: 
  Country: None (occurrence: None)
  Receive Date: 20100819
  Receipt Date: 20100809
  Transmission Date: 20110219
  Serious: Yes (Hospitalization)
  Sender: FDA-Public Use
  Company Number: US-BAXTER-2010BH020642

PATIENT
  Age: 42 Year
  Sex: Male

DRUGS (4)
  1. DIANEAL [Suspect]
     Indication: PERITONEAL DIALYSIS
     Route: 033
     Dates: start: 20091201, end: 20100801
  2. DIANEAL [Suspect]
     Route: 033
     Dates: start: 20100801, end: 20100804
  3. DIANEAL [Suspect]
     Indication: PERITONEAL DIALYSIS
     Route: 033
     Dates: start: 20091201, end: 20100801
  4. DIANEAL [Suspect]
     Route: 033
     Dates: start: 20100801, end: 20100804

REACTIONS (4)
  - DYSPNOEA [None]
  - MALAISE [None]
  - PERICARDIAL EFFUSION [None]
  - PNEUMONIA [None]
